FAERS Safety Report 13259773 (Version 1)
Quarter: 2017Q1

REPORT INFORMATION
  Report Type: Spontaneous
  Country: BE (occurrence: BE)
  Receive Date: 20170222
  Receipt Date: 20170222
  Transmission Date: 20170428
  Serious: Yes (Life-Threatening, Hospitalization, Other)
  Sender: FDA-Public Use
  Company Number: BE-009507513-1702BEL009062

PATIENT
  Age: 78 Year
  Sex: Male

DRUGS (2)
  1. ONCOTICE [Suspect]
     Active Substance: BACILLUS CALMETTE-GUERIN SUBSTRAIN TICE LIVE ANTIGEN
     Indication: BLADDER CANCER RECURRENT
     Dosage: UNK
     Route: 043
  2. ONCOTICE [Suspect]
     Active Substance: BACILLUS CALMETTE-GUERIN SUBSTRAIN TICE LIVE ANTIGEN
     Dosage: UNK, REPEATED AFTER 7, 8 AND 11 YEARS DUE TO ONCOLOGICAL RELAPSE
     Route: 043

REACTIONS (3)
  - Mycobacterial infection [Recovered/Resolved]
  - Aortic aneurysm rupture [Recovered/Resolved]
  - Infective aneurysm [Recovered/Resolved]
